FAERS Safety Report 23218310 (Version 1)
Quarter: 2023Q4

REPORT INFORMATION
  Report Type: Spontaneous
  Country: US (occurrence: US)
  Receive Date: 20231122
  Receipt Date: 20231122
  Transmission Date: 20240109
  Serious: Yes (Other)
  Sender: FDA-Public Use
  Company Number: US-ALCON LABORATORIES-ALC2023US005178

PATIENT
  Age: 12 Year
  Sex: Male
  Weight: 30 kg

DRUGS (2)
  1. ATROPINE [Suspect]
     Active Substance: ATROPINE\ATROPINE SULFATE
     Indication: Eye injury
     Dosage: 1 DROP INTO HIS LEFT EYE TWICE DAILY FOR THE PREVIOUS 10 DAYS
     Route: 047
  2. PREDNISOLONE [Suspect]
     Active Substance: PREDNISOLONE
     Indication: Eye injury
     Dosage: 1 DROP INTO THE LEFT EYE 4 TIMES DAILY
     Route: 047

REACTIONS (10)
  - Anticholinergic syndrome [Unknown]
  - Overdose [Unknown]
  - Nausea [Unknown]
  - Muscular weakness [Unknown]
  - Mental status changes [Unknown]
  - Agitation [Unknown]
  - Vomiting [Unknown]
  - Confusional state [Unknown]
  - Pyrexia [Unknown]
  - Tachycardia [Unknown]
